FAERS Safety Report 5167730-8 (Version None)
Quarter: 2006Q4

REPORT INFORMATION
  Report Type: 
  Country: None (occurrence: None)
  Receive Date: 20061204
  Receipt Date: 20061204
  Transmission Date: 20070319
  Serious: Yes (Death, Hospitalization)
  Sender: FDA-Public Use
  Company Number: None

PATIENT
  Sex: Male
  Weight: 81.5 kg

DRUGS (3)
  1. CYCLOPHOSPHAMIDE [Suspect]
     Dosage: 3180 MG
     Dates: start: 20061026, end: 20061123
  2. CYTARABINE [Suspect]
     Dosage: 1952 MG
     Dates: end: 20061119
  3. METHOTREXATE [Suspect]
     Dosage: 50 MG
     Dates: end: 20061116

REACTIONS (1)
  - SEPSIS [None]
